FAERS Safety Report 17361582 (Version 2)
Quarter: 2020Q1

REPORT INFORMATION
  Report Type: Spontaneous
  Country: US (occurrence: US)
  Receive Date: 20200203
  Receipt Date: 20200204
  Transmission Date: 20200409
  Serious: No
  Sender: FDA-Public Use
  Company Number: US-PFIZER INC-2020042547

PATIENT
  Age: 59 Year
  Sex: Female
  Weight: 61.23 kg

DRUGS (5)
  1. GABAPENTIN. [Suspect]
     Active Substance: GABAPENTIN
     Indication: SURGERY
  2. GABAPENTIN. [Suspect]
     Active Substance: GABAPENTIN
     Indication: PAIN
     Dosage: 600 MG, AS NEEDED (600 MG THREE TIMES A DAY AS NEEDED)
  3. GABAPENTIN. [Suspect]
     Active Substance: GABAPENTIN
     Indication: FACE INJURY
     Dosage: 300 MG, 3X/DAY
     Route: 048
  4. GABAPENTIN. [Suspect]
     Active Substance: GABAPENTIN
     Indication: FACIAL NEURALGIA
  5. FIORICET WITH CODEINE [Concomitant]
     Active Substance: ACETAMINOPHEN\BUTALBITAL\CAFFEINE\CODEINE PHOSPHATE
     Indication: PAIN

REACTIONS (5)
  - Off label use [Unknown]
  - Product use in unapproved indication [Unknown]
  - Burning sensation [Unknown]
  - Dysgraphia [Unknown]
  - Speech disorder [Unknown]
